FAERS Safety Report 19553407 (Version 3)
Quarter: 2021Q3

REPORT INFORMATION
  Report Type: Spontaneous
  Country: AU (occurrence: AU)
  Receive Date: 20210715
  Receipt Date: 20210728
  Transmission Date: 20211014
  Serious: Yes (Other)
  Sender: FDA-Public Use
  Company Number: AU-MYLANLABS-2021M1041784

PATIENT
  Age: 47 Year
  Sex: Male
  Weight: 78.3 kg

DRUGS (6)
  1. HALOPERIDOL. [Concomitant]
     Active Substance: HALOPERIDOL
     Dosage: 200 MILLIGRAM, MONTHLY
     Route: 030
  2. ROSUVASTATIN. [Concomitant]
     Active Substance: ROSUVASTATIN
     Dosage: 20 MILLIGRAM, PM
  3. THIAMIN                            /00056101/ [Concomitant]
     Active Substance: THIAMINE
     Dosage: 300 MILLIGRAM, AM
  4. CLOZARIL [Suspect]
     Active Substance: CLOZAPINE
     Indication: SCHIZOPHRENIA
     Dosage: UNK
     Route: 048
     Dates: start: 20061007
  5. ASPIRIN                            /00002701/ [Concomitant]
     Active Substance: ASPIRIN
     Dosage: 100 MILLIGRAM, AM
  6. CHOLECALCIFEROL [Concomitant]
     Active Substance: CHOLECALCIFEROL
     Dosage: 25 MICROGRAM, AM

REACTIONS (12)
  - Blood osmolarity decreased [Not Recovered/Not Resolved]
  - Blood magnesium decreased [Not Recovered/Not Resolved]
  - Blood sodium decreased [Not Recovered/Not Resolved]
  - Adjusted calcium decreased [Recovered/Resolved]
  - White blood cell count decreased [Recovered/Resolved]
  - Blood glucose increased [Not Recovered/Not Resolved]
  - Therapy cessation [Unknown]
  - Echocardiogram abnormal [Unknown]
  - Lymphocyte count decreased [Not Recovered/Not Resolved]
  - Anion gap increased [Recovered/Resolved]
  - Blood creatinine decreased [Recovered/Resolved]
  - Blood urea abnormal [Recovered/Resolved]

NARRATIVE: CASE EVENT DATE: 20141029
